FAERS Safety Report 18161160 (Version 1)
Quarter: 2020Q3

REPORT INFORMATION
  Report Type: Spontaneous
  Country: US (occurrence: US)
  Receive Date: 20200818
  Receipt Date: 20200818
  Transmission Date: 20201103
  Serious: No
  Sender: FDA-Public Use
  Company Number: US-TORRENT-00010336

PATIENT
  Sex: Female

DRUGS (1)
  1. ACYCLOVIR OINTMENT USP [Suspect]
     Active Substance: ACYCLOVIR
     Indication: PRODUCT USED FOR UNKNOWN INDICATION
     Dosage: UNKNOWN
     Dates: start: 20200731

REACTIONS (1)
  - Product physical consistency issue [Unknown]

NARRATIVE: CASE EVENT DATE: 20200731
